FAERS Safety Report 9950703 (Version 1)
Quarter: 2014Q1

REPORT INFORMATION
  Report Type: Report from Study
  Country: PR (occurrence: PR)
  Receive Date: 20140304
  Receipt Date: 20140304
  Transmission Date: 20141002
  Serious: No
  Sender: FDA-Public Use
  Company Number: PR-ABBVIE-13P-131-1073941-00

PATIENT
  Age: 49 Year
  Sex: Female

DRUGS (7)
  1. HUMIRA [Suspect]
     Indication: RHEUMATOID ARTHRITIS
     Route: 058
  2. HUMIRA [Suspect]
     Route: 058
     Dates: start: 20121003, end: 20130402
  3. HUMIRA [Suspect]
     Route: 058
     Dates: start: 20130416
  4. ADVAIR [Concomitant]
     Indication: ASTHMA
     Dosage: FORM STRENGTH: 100/50; 1 PUMP DAILY; ORAL
     Route: 055
     Dates: start: 2010
  5. METHOTREXATE [Concomitant]
     Indication: RHEUMATOID ARTHRITIS
     Route: 048
     Dates: start: 2010
  6. FOLIC ACID [Concomitant]
     Indication: RHEUMATOID ARTHRITIS
     Route: 048
     Dates: start: 201105
  7. SYNTHROID [Concomitant]
     Indication: THYROID DISORDER
     Route: 048
     Dates: start: 2008

REACTIONS (1)
  - Nasopharyngitis [Recovered/Resolved]
